FAERS Safety Report 6472086-4 (Version None)
Quarter: 2009Q4

REPORT INFORMATION
  Report Type: 
  Country: None (occurrence: None)
  Receive Date: 20091203
  Receipt Date: 20080418
  Transmission Date: 20100525
  Serious: Yes (Hospitalization)
  Sender: FDA-Public Use
  Company Number: CZ-ELI_LILLY_AND_COMPANY-CZ200804001670

PATIENT
  Age: 71 Year
  Sex: Female

DRUGS (9)
  1. ZYPREXA [Suspect]
     Indication: AFFECTIVE DISORDER
     Dosage: 2.5 MG, DAILY (1/D)
     Route: 048
     Dates: start: 20060901, end: 20080330
  2. ZYPREXA [Suspect]
     Dosage: 10 MG, DAILY (1/D)
     Route: 048
     Dates: start: 20080331, end: 20080401
  3. TIAPRIDAL /00435701/ [Concomitant]
     Indication: ABNORMAL BEHAVIOUR
     Dosage: 300 MG, UNK
     Route: 048
     Dates: start: 20060901
  4. GERATAM [Concomitant]
     Indication: DEMENTIA
     Dosage: 4200 MG, UNK
     Dates: start: 20060901
  5. ANTIHYPERTENSIVES [Concomitant]
  6. BETA BLOCKING AGENTS [Concomitant]
     Indication: CARDIAC DISORDER
  7. DIURETICS [Concomitant]
     Indication: CARDIAC DISORDER
  8. TIAPRIDE [Concomitant]
     Dosage: UNK, UNK
     Dates: start: 20080331, end: 20080331
  9. BURONIL [Concomitant]
     Dates: start: 20080331

REACTIONS (4)
  - DIABETIC HYPERGLYCAEMIC COMA [None]
  - MENTAL DISORDER [None]
  - PNEUMONIA [None]
  - RENAL IMPAIRMENT [None]
